FAERS Safety Report 4928258-0 (Version None)
Quarter: 2006Q1

REPORT INFORMATION
  Report Type: 
  Country: None (occurrence: None)
  Receive Date: 20060223
  Receipt Date: 20060116
  Transmission Date: 20060701
  Serious: Yes (Hospitalization)
  Sender: FDA-Public Use
  Company Number: IN200512001213

PATIENT
  Age: 65 Year
  Sex: Female

DRUGS (5)
  1. HUMULIN R [Suspect]
     Indication: DIABETES MELLITUS
     Dosage: 10 IU, DAILY (1/D), SUBCUTANEOUS
     Route: 058
     Dates: start: 20051129, end: 20051202
  2. GLIMEPIRIDE [Concomitant]
  3. LEVOCETIRIZINE (LEVOCETIRIZINE) [Concomitant]
  4. VITAMIN B COMPLEX (CALCIUM PANTOTHENATE, NICOTINAMIDE, PYRIDOXINE HYDR [Concomitant]
  5. SODIUM PICOSULFATE (SODIUM PICOSULFATE) [Concomitant]

REACTIONS (4)
  - DIABETES MELLITUS INADEQUATE CONTROL [None]
  - DRUG INEFFECTIVE [None]
  - HERNIA REPAIR [None]
  - PHARMACEUTICAL PRODUCT COMPLAINT [None]
